FAERS Safety Report 4270076-3 (Version None)
Quarter: 2004Q1

REPORT INFORMATION
  Report Type: 
  Country: None (occurrence: None)
  Receive Date: 20040114
  Receipt Date: 20030205
  Transmission Date: 20041129
  Serious: No
  Sender: FDA-Public Use
  Company Number: US-GLAXOSMITHKLINE-A0395674A

PATIENT
  Sex: Female

DRUGS (3)
  1. WELLBUTRIN [Suspect]
     Indication: DEPRESSION
     Route: 048
     Dates: start: 20030101
  2. PAXIL [Suspect]
     Indication: DEPRESSION
     Route: 048
  3. IBUPROFEN [Concomitant]
     Dosage: 300MG UNKNOWN

REACTIONS (8)
  - ARTHRALGIA [None]
  - CRYING [None]
  - HEADACHE [None]
  - IMMOBILE [None]
  - MOOD SWINGS [None]
  - OEDEMA PERIPHERAL [None]
  - PAIN IN EXTREMITY [None]
  - RESTLESS LEGS SYNDROME [None]
